FAERS Safety Report 9803998 (Version 1)
Quarter: 2014Q1

REPORT INFORMATION
  Report Type: Spontaneous
  Country: GR (occurrence: GR)
  Receive Date: 20140108
  Receipt Date: 20140108
  Transmission Date: 20141002
  Serious: Yes (Other)
  Sender: FDA-Public Use
  Company Number: PHHY2014GR001666

PATIENT
  Sex: Male

DRUGS (2)
  1. GILENYA [Suspect]
     Indication: MULTIPLE SCLEROSIS
     Route: 048
  2. GILENYA [Suspect]
     Dosage: UNK
     Route: 048

REACTIONS (2)
  - Varicella virus test positive [Unknown]
  - Bradycardia [Recovered/Resolved]
